FAERS Safety Report 6602339-8 (Version None)
Quarter: 2010Q1

REPORT INFORMATION
  Report Type: 
  Country: None (occurrence: None)
  Receive Date: 20100225
  Receipt Date: 20100216
  Transmission Date: 20100710
  Serious: Yes (Other)
  Sender: FDA-Public Use
  Company Number: A0845522A

PATIENT
  Age: 53 Year
  Sex: Female

DRUGS (3)
  1. ZOFRAN [Suspect]
     Indication: DRUG USE FOR UNKNOWN INDICATION
     Route: 065
  2. ZOFRAN [Suspect]
     Route: 065
  3. ZANTAC [Suspect]
     Indication: DRUG USE FOR UNKNOWN INDICATION
     Route: 065

REACTIONS (2)
  - HOSPICE CARE [None]
  - MALIGNANT NEOPLASM PROGRESSION [None]
